FAERS Safety Report 8226688-5 (Version None)
Quarter: 2012Q1

REPORT INFORMATION
  Report Type: 
  Country: None (occurrence: None)
  Receive Date: 20120322
  Receipt Date: 20120314
  Transmission Date: 20120608
  Serious: Yes (Hospitalization)
  Sender: FDA-Public Use
  Company Number: US-BAYER-2011-095401

PATIENT
  Age: 26 Year
  Sex: Female
  Weight: 79.365 kg

DRUGS (9)
  1. NITROFURANTOIN [Concomitant]
     Indication: URINARY TRACT INFECTION
  2. METHYLPREDNISOLONE [Concomitant]
     Indication: PRODUCT USED FOR UNKNOWN INDICATION
     Dosage: 4 MG, UNK
  3. ZOLPIDEM [Concomitant]
     Indication: INSOMNIA
     Dosage: 10 MG, UNK
     Dates: start: 20091101
  4. SERTRALINE HYDROCHLORIDE [Concomitant]
     Indication: STRESS
  5. METRONIDAZOLE [Concomitant]
     Indication: VAGINAL INFECTION
     Dosage: 500 MG, UNK
  6. SERTRALINE HYDROCHLORIDE [Concomitant]
     Indication: DEPRESSION
     Dosage: 100 MG, UNK
     Dates: start: 20091101
  7. FLEXERIL [Concomitant]
     Indication: PRODUCT USED FOR UNKNOWN INDICATION
     Dosage: 10 MG, UNK
  8. YAZ [Suspect]
     Indication: MENSTRUAL CYCLE MANAGEMENT
     Dosage: UNK
     Dates: start: 20100501, end: 20100701
  9. YASMIN [Suspect]
     Dosage: UNK
     Dates: start: 20100101

REACTIONS (2)
  - PULMONARY EMBOLISM [None]
  - INJURY [None]
